FAERS Safety Report 21388285 (Version 10)
Quarter: 2022Q4

REPORT INFORMATION
  Report Type: Report from Study
  Country: CN (occurrence: CN)
  Receive Date: 20220928
  Receipt Date: 20221213
  Transmission Date: 20230113
  Serious: Yes (Death, Life-Threatening, Hospitalization)
  Sender: FDA-Public Use
  Company Number: CN-PFIZER INC-PV202200070355

PATIENT
  Age: 63 Year
  Sex: Male
  Weight: 65 kg

DRUGS (13)
  1. PACLITAXEL [Suspect]
     Active Substance: PACLITAXEL
     Indication: Non-small cell lung cancer
     Dosage: 200 MG/SQ.METER (DOSE ADMINISTERES 351 MG) ON DAY 1 OF Q3W IN CYCLE 1
     Route: 042
     Dates: start: 20220419, end: 20220419
  2. PACLITAXEL [Suspect]
     Active Substance: PACLITAXEL
     Dosage: 45 MG/SQ.METER (DOSE ADMINISTERED 78 MG), ON DAYS 1, 8 AND 15 IN CYCLES 2 AND 3
     Route: 042
     Dates: start: 20220510, end: 20220621
  3. CARBOPLATIN [Suspect]
     Active Substance: CARBOPLATIN
     Indication: Non-small cell lung cancer
     Dosage: AREA UNDER THE CURVE (AUC) 6 MG/ML/MIN (DOSE ADMINISTERED 700 MG), ON DAY 1 IN CYCLE 1, INJECTION
     Route: 042
     Dates: start: 20220419, end: 20220419
  4. CARBOPLATIN [Suspect]
     Active Substance: CARBOPLATIN
     Dosage: AUC 2 MG/ML/MIN (DOSE ADMINISTERED 250 MG), ON DAYS 1, 8 AND 15 OF Q3W IN CYCLES 2 AND 3, INJECTION
     Route: 042
     Dates: start: 20220510, end: 20220621
  5. DURVALUMAB [Suspect]
     Active Substance: DURVALUMAB
     Indication: Non-small cell lung cancer
     Dosage: 640 MG (10 MG/KG), EVERY 2 WEEKS (QOW), INJECTION
     Route: 042
     Dates: start: 20220713, end: 20220727
  6. CODEINE PHOSPHATE\IBUPROFEN [Concomitant]
     Active Substance: CODEINE PHOSPHATE\IBUPROFEN
     Dosage: UNK
     Dates: start: 20220401
  7. ACETAMINOPHEN\OXYCODONE HYDROCHLORIDE [Concomitant]
     Active Substance: ACETAMINOPHEN\OXYCODONE HYDROCHLORIDE
     Dosage: UNK
     Dates: start: 20220401
  8. METHYLPREDNISOLONE SODIUM SUCCINATE [Concomitant]
     Active Substance: METHYLPREDNISOLONE SODIUM SUCCINATE
     Dosage: 80 MG, INTRAVENOUS INJECTION
     Route: 042
     Dates: start: 20220825, end: 20220913
  9. PREDNISONE ACETATE [Concomitant]
     Active Substance: PREDNISONE ACETATE
     Dosage: 50 MG
     Dates: start: 20220901, end: 20220912
  10. DOXOFYLLINE [Concomitant]
     Active Substance: DOXOFYLLINE
     Dosage: 300 MG, INTRAVENOUS INJECTION
     Route: 042
     Dates: start: 20220822, end: 20220831
  11. AMOXICILLIN [Concomitant]
     Active Substance: AMOXICILLIN
     Dosage: 1 G
     Dates: start: 20220906, end: 20220912
  12. KANG AI [Concomitant]
     Dosage: 40 ML, INTRAVENOUS INJECTION
     Route: 042
     Dates: start: 20220827, end: 20220831
  13. YI QI WEI XUE [Concomitant]
     Dosage: UNK
     Dates: start: 20220623, end: 20220712

REACTIONS (2)
  - Pneumonia [Fatal]
  - Pneumonitis [Fatal]

NARRATIVE: CASE EVENT DATE: 20220711
